FAERS Safety Report 9525216 (Version 1)
Quarter: 2013Q3

REPORT INFORMATION
  Report Type: Spontaneous
  Country: US (occurrence: None)
  Receive Date: 20130913
  Receipt Date: 20130913
  Transmission Date: 20140515
  Serious: Yes (Hospitalization)
  Sender: FDA-Public Use
  Company Number: None

PATIENT
  Sex: Female

DRUGS (1)
  1. TECFIDERA [Suspect]
     Indication: MULTIPLE SCLEROSIS
     Dosage: 240MG  TWICE DAILY  BY MOUTH
     Route: 048
     Dates: start: 20130509

REACTIONS (3)
  - Vomiting [None]
  - Influenza like illness [None]
  - Cholecystectomy [None]
